FAERS Safety Report 8335008-7 (Version None)
Quarter: 2012Q2

REPORT INFORMATION
  Report Type: 
  Country: None (occurrence: None)
  Receive Date: 20120503
  Receipt Date: 20120430
  Transmission Date: 20120825
  Serious: Yes (Hospitalization, Other)
  Sender: FDA-Public Use
  Company Number: US-PFIZER INC-2012106518

PATIENT
  Age: 60 Year
  Sex: Female

DRUGS (4)
  1. NIFEDIPINE [Concomitant]
  2. ACETYLSALICYLIC ACID [Concomitant]
  3. AMLODIPINE BESYLATE [Suspect]
     Dosage: 10 MG, 2X/DAY
     Route: 048
  4. METOPROLOL [Concomitant]
     Dosage: UNK

REACTIONS (4)
  - CARDIOGENIC SHOCK [None]
  - ILEUS PARALYTIC [None]
  - LACTIC ACIDOSIS [None]
  - TOXICITY TO VARIOUS AGENTS [None]
